FAERS Safety Report 7414432-0 (Version None)
Quarter: 2011Q2

REPORT INFORMATION
  Report Type: 
  Country: None (occurrence: None)
  Receive Date: 20110414
  Receipt Date: 20110322
  Transmission Date: 20111010
  Serious: Yes (Hospitalization, Other)
  Sender: FDA-Public Use
  Company Number: US-BAYER-2010-001757

PATIENT
  Sex: Female

DRUGS (4)
  1. YAZ [Suspect]
  2. PHENTERMINE [Concomitant]
     Dosage: UNK
     Dates: end: 20090101
  3. YASMIN [Suspect]
  4. PROVERA [Concomitant]
     Dosage: UNK
     Dates: end: 20090101

REACTIONS (6)
  - CHOLECYSTITIS [None]
  - BIPOLAR I DISORDER [None]
  - GALLBLADDER INJURY [None]
  - CARDIAC DISORDER [None]
  - BILIARY DYSKINESIA [None]
  - DEPRESSION [None]
